FAERS Safety Report 6430037-2 (Version None)
Quarter: 2009Q4

REPORT INFORMATION
  Report Type: 
  Country: None (occurrence: None)
  Receive Date: 20091104
  Receipt Date: 20091104
  Transmission Date: 20100525
  Serious: No
  Sender: FDA-Public Use
  Company Number: None

PATIENT
  Sex: Female
  Weight: 58.9676 kg

DRUGS (1)
  1. BONIVA [Suspect]
     Indication: BONE DENSITY DECREASED
     Dosage: 150 MG 1 MONTHLY
     Dates: start: 19980901, end: 20091001

REACTIONS (7)
  - BONE DENSITY DECREASED [None]
  - CRYING [None]
  - DRUG INEFFECTIVE [None]
  - DYSKINESIA [None]
  - JAW DISORDER [None]
  - OSTEOARTHRITIS [None]
  - VOMITING [None]
